FAERS Safety Report 6828230-X (Version None)
Quarter: 2010Q3

REPORT INFORMATION
  Report Type: 
  Country: None (occurrence: None)
  Receive Date: 20100709
  Receipt Date: 20070203
  Transmission Date: 20110219
  Serious: No
  Sender: FDA-Public Use
  Company Number: US-PFIZER INC-2007008005

PATIENT
  Sex: Female
  Weight: 37.19 kg

DRUGS (4)
  1. CHANTIX [Suspect]
     Indication: SMOKING CESSATION THERAPY
     Dates: start: 20070118, end: 20070101
  2. ZOLOFT [Concomitant]
  3. COMBIVENT [Concomitant]
     Route: 055
  4. ADVAIR DISKUS 100/50 [Concomitant]
     Route: 055

REACTIONS (4)
  - FATIGUE [None]
  - INSOMNIA [None]
  - NAUSEA [None]
  - SOMNOLENCE [None]
